FAERS Safety Report 21936736 (Version 1)
Quarter: 2023Q1

REPORT INFORMATION
  Report Type: Spontaneous
  Country: US (occurrence: None)
  Receive Date: 20230201
  Receipt Date: 20230201
  Transmission Date: 20230417
  Serious: Yes (Hospitalization, Other)
  Sender: FDA-Public Use
  Company Number: US-Unichem Pharmaceuticals (USA) Inc-UCM202301-000120

PATIENT
  Age: 64 Year
  Sex: Female

DRUGS (1)
  1. METFORMIN HYDROCHLORIDE [Suspect]
     Active Substance: METFORMIN HYDROCHLORIDE
     Indication: Type 2 diabetes mellitus

REACTIONS (6)
  - Coma scale abnormal [Recovering/Resolving]
  - Acute kidney injury [Recovered/Resolved]
  - Azotaemia [Recovered/Resolved]
  - Shock [Recovered/Resolved]
  - Lactic acidosis [Recovering/Resolving]
  - Extra dose administered [Unknown]
